FAERS Safety Report 14127331 (Version 2)
Quarter: 2018Q1

REPORT INFORMATION
  Report Type: Report from Study
  Country: None (occurrence: US)
  Receive Date: 20171026
  Receipt Date: 20180110
  Transmission Date: 20180508
  Serious: Yes (Hospitalization, Other)
  Sender: FDA-Public Use
  Company Number: US-ABBVIE-17K-163-2137809-00

PATIENT
  Age: 71 Year
  Sex: Female

DRUGS (2)
  1. HUMIRA [Suspect]
     Active Substance: ADALIMUMAB
     Route: 058
     Dates: start: 2017, end: 20171009
  2. HUMIRA [Suspect]
     Active Substance: ADALIMUMAB
     Indication: RHEUMATOID ARTHRITIS
     Route: 058
     Dates: start: 20170811, end: 20170825

REACTIONS (12)
  - Legionella infection [Unknown]
  - Sepsis [Unknown]
  - Urinary tract infection [Recovering/Resolving]
  - Vertigo [Recovering/Resolving]
  - Guillain-Barre syndrome [Unknown]
  - Headache [Unknown]
  - Cystitis [Unknown]
  - Asthenia [Unknown]
  - Fatigue [Unknown]
  - Immunodeficiency [Unknown]
  - Neuropathy peripheral [Unknown]
  - Pneumonia [Recovering/Resolving]

NARRATIVE: CASE EVENT DATE: 2017
